FAERS Safety Report 23393173 (Version 1)
Quarter: 2024Q1

REPORT INFORMATION
  Report Type: Report from Study
  Country: CA (occurrence: CA)
  Receive Date: 20240111
  Receipt Date: 20240111
  Transmission Date: 20240410
  Serious: Yes (Other)
  Sender: FDA-Public Use
  Company Number: CA-BAUSCH-BL-2023-013619

PATIENT
  Sex: Male
  Weight: 79.9 kg

DRUGS (5)
  1. CONTRAVE [Suspect]
     Active Substance: BUPROPION HYDROCHLORIDE\NALTREXONE HYDROCHLORIDE
     Indication: Weight control
     Dosage: 90/8MG
     Route: 048
     Dates: start: 2023, end: 2023
  2. CONTRAVE [Suspect]
     Active Substance: BUPROPION HYDROCHLORIDE\NALTREXONE HYDROCHLORIDE
     Dosage: 90/8MG, 2 TABLETS QAM, 2 TABLETS QPM
     Route: 048
     Dates: start: 202305, end: 2023
  3. CONTRAVE [Suspect]
     Active Substance: BUPROPION HYDROCHLORIDE\NALTREXONE HYDROCHLORIDE
     Dosage: 90/8MG, 2 TABLETS QAM
     Route: 048
     Dates: start: 202307
  4. ACCUTANE [Concomitant]
     Active Substance: ISOTRETINOIN
     Indication: Acne
     Dosage: FREQUENCY - PRN
     Dates: start: 202306, end: 202307
  5. VITAMINS NOS [Concomitant]
     Active Substance: VITAMINS
     Indication: Vitamin supplementation
     Dosage: UNK

REACTIONS (6)
  - Muscle atrophy [Recovering/Resolving]
  - Back pain [Not Recovered/Not Resolved]
  - Energy increased [Not Recovered/Not Resolved]
  - Intentional product use issue [Unknown]
  - Product dose omission in error [Unknown]
  - Patient dissatisfaction with treatment [Unknown]

NARRATIVE: CASE EVENT DATE: 20230101
